FAERS Safety Report 6686615-9 (Version None)
Quarter: 2010Q2

REPORT INFORMATION
  Report Type: 
  Country: None (occurrence: None)
  Receive Date: 20100414
  Receipt Date: 20100329
  Transmission Date: 20101027
  Serious: Yes (Other)
  Sender: FDA-Public Use
  Company Number: AVE_01745_2010

PATIENT
  Age: 48 Year
  Sex: Male

DRUGS (1)
  1. NICOTINE [Suspect]
     Indication: SMOKING CESSATION THERAPY
     Dosage: (21 MG QD TRANSDERMAL)
     Route: 062
     Dates: start: 20100319, end: 20100326

REACTIONS (1)
  - LOSS OF CONSCIOUSNESS [None]
